FAERS Safety Report 7956766-7 (Version None)
Quarter: 2011Q4

REPORT INFORMATION
  Report Type: 
  Country: None (occurrence: None)
  Receive Date: 20111205
  Receipt Date: 20111125
  Transmission Date: 20120403
  Serious: Yes (Hospitalization)
  Sender: FDA-Public Use
  Company Number: US-BAYER-2011-040635

PATIENT
  Age: 42 Year
  Sex: Female
  Weight: 120.64 kg

DRUGS (3)
  1. FLUOXETINE [Concomitant]
     Indication: DEPRESSION
     Dosage: UNK
     Dates: start: 20000101
  2. YASMIN [Suspect]
     Indication: CONTRACEPTION
     Dosage: UNK
     Route: 048
     Dates: start: 20040723, end: 20060507
  3. YASMIN [Suspect]
     Indication: POLYCYSTIC OVARIES

REACTIONS (10)
  - PAIN IN EXTREMITY [None]
  - OEDEMA PERIPHERAL [None]
  - DEEP VEIN THROMBOSIS [None]
  - PAIN [None]
  - EMOTIONAL DISTRESS [None]
  - ERYTHEMA [None]
  - GENERAL PHYSICAL HEALTH DETERIORATION [None]
  - MOBILITY DECREASED [None]
  - HYPOAESTHESIA [None]
  - ANXIETY [None]
